FAERS Safety Report 6573960-0 (Version None)
Quarter: 2010Q1

REPORT INFORMATION
  Report Type: 
  Country: None (occurrence: None)
  Receive Date: 20100208
  Receipt Date: 20100127
  Transmission Date: 20100710
  Serious: Yes (Hospitalization)
  Sender: FDA-Public Use
  Company Number: US-PFIZER INC-2010011254

PATIENT
  Age: 66 Year
  Sex: Female

DRUGS (10)
  1. ATORVASTATIN CALCIUM [Suspect]
     Dosage: 80 MG, 1X/DAY
  2. CLONIDINE [Interacting]
     Indication: HYPERTENSION
     Dosage: 0.2 MG, 3X/DAY
     Route: 048
  3. CLONIDINE [Interacting]
     Dosage: 0.1 MG, 3X/DAY
  4. DULOXETINE [Interacting]
     Indication: DEPRESSION
     Dosage: 60 MG, 1X/DAY
     Route: 048
  5. MEMANTINE [Concomitant]
     Indication: DEMENTIA
     Dosage: 10 MG, 2X/DAY
     Route: 048
  6. DONEPEZIL [Concomitant]
     Indication: DEMENTIA
     Dosage: 10 MG, 1X/DAY
     Route: 048
  7. METOPROLOL [Concomitant]
     Indication: HYPERTENSION
     Dosage: 50 MG, 2X/DAY
     Route: 048
  8. AMLODIPINE [Concomitant]
     Indication: HYPERTENSION
     Dosage: 10 MG, 1X/DAY
     Route: 048
  9. ACETYLSALICYLIC ACID [Concomitant]
     Dosage: 325 MG, 1X/DAY
     Route: 048
  10. CLOPIDOGREL [Concomitant]
     Dosage: 75 MG, 1X/DAY
     Route: 048

REACTIONS (2)
  - DRUG INTERACTION [None]
  - PYREXIA [None]
